FAERS Safety Report 18526983 (Version 1)
Quarter: 2020Q4

REPORT INFORMATION
  Report Type: Spontaneous
  Country: PE (occurrence: PE)
  Receive Date: 20201119
  Receipt Date: 20201119
  Transmission Date: 20210114
  Serious: Yes (Other)
  Sender: FDA-Public Use
  Company Number: None

PATIENT
  Age: 61 Year
  Sex: Female
  Weight: 76 kg

DRUGS (9)
  1. VALSARTAN (DIOVAN 12..5/160) [Concomitant]
  2. VITAMIN D [Concomitant]
     Active Substance: VITAMIN D NOS
  3. ROSUVASTATIN (CRESTOR 10) [Concomitant]
  4. ANASTROZOLE (ARIMIDEX 1MG) [Concomitant]
  5. XIGDUO XR [Suspect]
     Active Substance: DAPAGLIFLOZIN PROPANEDIOL\METFORMIN HYDROCHLORIDE
     Indication: TYPE 2 DIABETES MELLITUS
     Dosage: ?          QUANTITY:1 TABLET(S);?
     Route: 048
     Dates: start: 20200930, end: 20201117
  6. ALOPURINOL (ZYLORIC 100) [Concomitant]
  7. MAGNESIUM NEBIVOLOL (NEBILET (2.5) [Concomitant]
  8. ALENDRONATE ASPIRIN [Concomitant]
  9. KOMBIGLYZE XR [Concomitant]
     Active Substance: METFORMIN HYDROCHLORIDE\SAXAGLIPTIN HYDROCHLORIDE

REACTIONS (7)
  - Thirst [None]
  - Insomnia [None]
  - Pruritus genital [None]
  - Genital erythema [None]
  - Dizziness [None]
  - Sensory disturbance [None]
  - Headache [None]

NARRATIVE: CASE EVENT DATE: 20201114
